FAERS Safety Report 7822086-4 (Version None)
Quarter: 2011Q4

REPORT INFORMATION
  Report Type: 
  Country: None (occurrence: None)
  Receive Date: 20111018
  Receipt Date: 20111013
  Transmission Date: 20120403
  Serious: Yes (Other)
  Sender: FDA-Public Use
  Company Number: PHHY2011DE69447

PATIENT
  Sex: Female
  Weight: 88 kg

DRUGS (1)
  1. FEMARA [Suspect]
     Dosage: PER DAY AT EVENING
     Route: 048

REACTIONS (1)
  - MIGRAINE [None]
